FAERS Safety Report 9754469 (Version 4)
Quarter: 2014Q1

REPORT INFORMATION
  Report Type: Report from Study
  Country: FR (occurrence: FR)
  Receive Date: 20131213
  Receipt Date: 20140107
  Transmission Date: 20141002
  Serious: Yes (Hospitalization)
  Sender: FDA-Public Use
  Company Number: FR-ONYX-2013-1958

PATIENT
  Age: 70 Year
  Sex: Male

DRUGS (6)
  1. CARFILZOMIB [Suspect]
     Indication: PLASMA CELL MYELOMA
     Route: 042
     Dates: start: 20131003, end: 20131004
  2. CARFILZOMIB [Suspect]
     Route: 042
     Dates: start: 20131010, end: 20131018
  3. CARFILZOMIB [Suspect]
     Route: 042
     Dates: start: 20131030, end: 20131114
  4. DEXAMETHASONE [Suspect]
     Indication: PLASMA CELL MYELOMA
     Dates: start: 20131003, end: 20131121
  5. OXYCONTIN [Concomitant]
     Indication: BACK PAIN
     Route: 048
     Dates: start: 20110524
  6. PARACETAMOL [Concomitant]
     Indication: BACK PAIN
     Route: 048
     Dates: start: 20131106

REACTIONS (1)
  - Pulmonary embolism [Recovered/Resolved]
